FAERS Safety Report 9515409 (Version 2)
Quarter: 2013Q4

REPORT INFORMATION
  Report Type: Spontaneous
  Country: US (occurrence: US)
  Receive Date: 20130911
  Receipt Date: 20131010
  Transmission Date: 20140711
  Serious: Yes (Other)
  Sender: FDA-Public Use
  Company Number: PHEH2013US018615

PATIENT
  Sex: Female

DRUGS (7)
  1. VALSARTAN + HCT [Suspect]
     Dosage: UNK UKN, UNK
     Dates: start: 20130103
  2. VALSARTAN + HCT [Suspect]
     Dosage: UNK, QOD
     Dates: start: 20130103
  3. VALSARTAN + HCT [Suspect]
     Dosage: UNK UKN, UNK
     Dates: start: 20130801, end: 20130808
  4. DIOVAN HCT [Suspect]
     Dosage: 160/25 MG, UNK
  5. LOSARTAN [Suspect]
     Dosage: 160/25 MG, UNK
     Dates: start: 20130808
  6. SINGULAIR [Concomitant]
     Dosage: 10 MG, DAILY
  7. DEPOPROVERA [Concomitant]
     Dosage: 150 MG, EVERY 90 DAYS

REACTIONS (7)
  - Asthma [Unknown]
  - Hypertension [Unknown]
  - Feeling abnormal [Unknown]
  - Pollakiuria [Recovered/Resolved]
  - Dizziness [Unknown]
  - Chest pain [Unknown]
  - Hypersensitivity [Unknown]
